FAERS Safety Report 22645743 (Version 1)
Quarter: 2023Q2

REPORT INFORMATION
  Report Type: Spontaneous
  Country: IL (occurrence: IL)
  Receive Date: 20230627
  Receipt Date: 20230627
  Transmission Date: 20230721
  Serious: Yes (Life-Threatening, Hospitalization)
  Sender: FDA-Public Use
  Company Number: IL-002147023-NVSC2023IL144940

PATIENT
  Age: 8 Year
  Sex: Female

DRUGS (5)
  1. EXJADE [Suspect]
     Active Substance: DEFERASIROX
     Indication: Sickle cell disease
     Dosage: 1000 MG, QD
     Route: 048
  2. EXJADE [Suspect]
     Active Substance: DEFERASIROX
     Dosage: 50 MG/KG, QD
     Route: 048
  3. HYDREA [Concomitant]
     Active Substance: HYDROXYUREA
     Indication: Product used for unknown indication
     Dosage: UNK
     Route: 065
  4. FOLIC ACID [Concomitant]
     Active Substance: FOLIC ACID
     Indication: Product used for unknown indication
     Dosage: UNK
     Route: 065
  5. AMOXICILLIN [Concomitant]
     Active Substance: AMOXICILLIN
     Indication: Product used for unknown indication
     Dosage: UNK
     Route: 065

REACTIONS (23)
  - Neurological decompensation [Recovering/Resolving]
  - Depressed level of consciousness [Recovering/Resolving]
  - Seizure [Recovering/Resolving]
  - Acidosis hyperchloraemic [Unknown]
  - Pain [Unknown]
  - Acute hepatic failure [Recovering/Resolving]
  - Hyperammonaemia [Unknown]
  - Blood bilirubin increased [Unknown]
  - Hepatic enzyme increased [Unknown]
  - Blood lactic acid increased [Unknown]
  - Blood lactate dehydrogenase increased [Unknown]
  - International normalised ratio increased [Unknown]
  - Acute kidney injury [Unknown]
  - Glomerular filtration rate abnormal [Recovering/Resolving]
  - Oliguria [Unknown]
  - Blood creatinine increased [Unknown]
  - Acute chest syndrome [Unknown]
  - Pyrexia [Recovered/Resolved]
  - Vomiting [Recovered/Resolved]
  - Diarrhoea [Recovered/Resolved]
  - Hypersplenism [Unknown]
  - Product use issue [Unknown]
  - Product administration error [Unknown]
